FAERS Safety Report 5039812-2 (Version None)
Quarter: 2006Q2

REPORT INFORMATION
  Report Type: 
  Country: None (occurrence: None)
  Receive Date: 20060601
  Receipt Date: 20060110
  Transmission Date: 20061013
  Serious: No
  Sender: FDA-Public Use
  Company Number: 2006PV006908

PATIENT
  Age: 54 Year
  Sex: Female
  Weight: 149.687 kg

DRUGS (3)
  1. BYETTA [Suspect]
     Indication: DIABETES MELLITUS NON-INSULIN-DEPENDENT
     Dosage: SEE IMAGE
     Route: 058
     Dates: start: 20051102, end: 20051130
  2. BYETTA [Suspect]
     Indication: DIABETES MELLITUS NON-INSULIN-DEPENDENT
     Dosage: SEE IMAGE
     Route: 058
     Dates: start: 20051201
  3. METFORMIN HCL [Concomitant]

REACTIONS (6)
  - CARDIAC STRESS TEST ABNORMAL [None]
  - DECREASED APPETITE [None]
  - FEELING JITTERY [None]
  - FLATULENCE [None]
  - INCREASED APPETITE [None]
  - WEIGHT DECREASED [None]
